FAERS Safety Report 12165578 (Version 1)
Quarter: 2016Q1

REPORT INFORMATION
  Report Type: Spontaneous
  Country: JP (occurrence: JP)
  Receive Date: 20160309
  Receipt Date: 20160309
  Transmission Date: 20160526
  Serious: Yes (Other)
  Sender: FDA-Public Use
  Company Number: JP-MYLANLABS-2016M1009991

PATIENT

DRUGS (5)
  1. SUNITINIB [Suspect]
     Active Substance: SUNITINIB
     Indication: RENAL CANCER METASTATIC
     Dosage: 50 MG/DAY
     Route: 065
  2. EVEROLIMUS [Suspect]
     Active Substance: EVEROLIMUS
     Dosage: 5 MG/DAY
  3. SUNITINIB [Suspect]
     Active Substance: SUNITINIB
     Indication: METASTASES TO LUNG
     Dosage: 37.5 MG/DAY
  4. SUNITINIB [Suspect]
     Active Substance: SUNITINIB
     Dosage: 25 MG/DAY FOR 4 WEEKS
  5. EVEROLIMUS [Suspect]
     Active Substance: EVEROLIMUS
     Indication: RENAL CANCER METASTATIC
     Dosage: 10 MG/DAY
     Route: 065

REACTIONS (3)
  - Interstitial lung disease [Recovering/Resolving]
  - Palmar-plantar erythrodysaesthesia syndrome [Unknown]
  - Stomatitis [Unknown]
